FAERS Safety Report 11940038 (Version 2)
Quarter: 2016Q1

REPORT INFORMATION
  Report Type: Report from Study
  Country: US (occurrence: US)
  Receive Date: 20160122
  Receipt Date: 20160201
  Transmission Date: 20160526
  Serious: Yes (Death)
  Sender: FDA-Public Use
  Company Number: US-SEATTLE GENETICS-2016SGN00051

PATIENT

DRUGS (7)
  1. LINEZOLID. [Concomitant]
     Active Substance: LINEZOLID
  2. LASIX [Concomitant]
     Active Substance: FUROSEMIDE
  3. DILAUDID [Concomitant]
     Active Substance: HYDROMORPHONE HYDROCHLORIDE
  4. BRENTUXIMAB VEDOTIN [Suspect]
     Active Substance: BRENTUXIMAB VEDOTIN
     Indication: ACUTE GRAFT VERSUS HOST DISEASE
     Dosage: 0.8 MG/KG, Q2WEEKS
     Route: 042
     Dates: start: 20151128, end: 20160108
  5. GENTAMYCIN                         /00047101/ [Concomitant]
     Active Substance: GENTAMICIN
  6. MEROPENEM. [Concomitant]
     Active Substance: MEROPENEM
  7. ATIVAN [Concomitant]
     Active Substance: LORAZEPAM

REACTIONS (1)
  - Graft versus host disease [Fatal]

NARRATIVE: CASE EVENT DATE: 20160115
